FAERS Safety Report 23742375 (Version 2)
Quarter: 2024Q2

REPORT INFORMATION
  Report Type: Spontaneous
  Country: AU (occurrence: AU)
  Receive Date: 20240415
  Receipt Date: 20240417
  Transmission Date: 20240716
  Serious: Yes (Hospitalization, Other)
  Sender: FDA-Public Use
  Company Number: AU-MLMSERVICE-20240402-PI006918-00175-1

PATIENT
  Age: 6 Decade
  Sex: Male

DRUGS (3)
  1. HEPARIN [Suspect]
     Active Substance: HEPARIN SODIUM
     Indication: Anticoagulant therapy
     Dosage: UNK
  2. WARFARIN [Suspect]
     Active Substance: WARFARIN
     Indication: Aortic stenosis
     Dosage: UNK
  3. WARFARIN [Suspect]
     Active Substance: WARFARIN
     Indication: Anticoagulant therapy

REACTIONS (4)
  - Hemianopia homonymous [Recovered/Resolved]
  - Ischaemic stroke [Recovered/Resolved]
  - Cerebral infarction [Recovered/Resolved]
  - Cerebral artery occlusion [Recovered/Resolved]
